FAERS Safety Report 23681672 (Version 2)
Quarter: 2024Q2

REPORT INFORMATION
  Report Type: Report from Study
  Country: US (occurrence: US)
  Receive Date: 20240328
  Receipt Date: 20240404
  Transmission Date: 20240715
  Serious: Yes (Hospitalization, Other)
  Sender: FDA-Public Use
  Company Number: US-ABBVIE-5694739

PATIENT
  Sex: Male

DRUGS (2)
  1. VENCLEXTA [Suspect]
     Active Substance: VENETOCLAX
     Indication: Acute myelomonocytic leukaemia
     Route: 048
     Dates: start: 202112
  2. VENCLEXTA [Suspect]
     Active Substance: VENETOCLAX
     Indication: Acute myelomonocytic leukaemia
     Dosage: 100MG; DAILY FOR 21 DAYS, THEN 7 DAYS OFF
     Route: 048

REACTIONS (3)
  - Heart rate decreased [Recovering/Resolving]
  - Ventricular extrasystoles [Unknown]
  - Cardiac disorder [Not Recovered/Not Resolved]
